FAERS Safety Report 5316183-5 (Version None)
Quarter: 2007Q2

REPORT INFORMATION
  Report Type: 
  Country: None (occurrence: None)
  Receive Date: 20070503
  Receipt Date: 20070423
  Transmission Date: 20071010
  Serious: Yes (Other)
  Sender: FDA-Public Use
  Company Number: AR-PFIZER INC-2007031312

PATIENT
  Sex: Male
  Weight: 74.8 kg

DRUGS (9)
  1. SU-011,248 [Suspect]
     Indication: METASTATIC RENAL CELL CARCINOMA
     Route: 048
     Dates: start: 20060418, end: 20070114
  2. SU-011,248 [Suspect]
     Indication: RENAL CELL CARCINOMA STAGE UNSPECIFIED
     Route: 048
     Dates: start: 20070209, end: 20070223
  3. SU-011,248 [Suspect]
     Route: 048
     Dates: start: 20070309
  4. PAMIDRONATE DISODIUM [Concomitant]
     Route: 042
  5. EPOGEN [Concomitant]
     Route: 058
  6. IRON [Concomitant]
     Route: 048
  7. KLOSIDOL [Concomitant]
     Route: 048
  8. CIPROFLOXACIN [Concomitant]
     Route: 048
     Dates: start: 20070224, end: 20070309
  9. METRONIDAZOLE [Concomitant]
     Route: 048
     Dates: start: 20070224, end: 20070309

REACTIONS (1)
  - HAEMORRHAGIC STROKE [None]
